FAERS Safety Report 25416755 (Version 2)
Quarter: 2025Q3

REPORT INFORMATION
  Report Type: Report from Study
  Country: US (occurrence: US)
  Receive Date: 20250610
  Receipt Date: 20250716
  Transmission Date: 20251021
  Serious: No
  Sender: IPSEN BIOPHARMACEUTICALS, INC.
  Company Number: US-IPSEN Group, Research and Development-2025-13456

PATIENT
  Age: 18 Year
  Sex: Female

DRUGS (4)
  1. BYLVAY [Suspect]
     Active Substance: ODEVIXIBAT
     Indication: Juvenile idiopathic arthritis
     Dates: start: 20250507
  2. BYLVAY [Suspect]
     Active Substance: ODEVIXIBAT
     Indication: Off label use
     Dates: start: 20250513
  3. BYLVAY [Suspect]
     Active Substance: ODEVIXIBAT
     Indication: Bilirubin excretion disorder
  4. BYLVAY [Suspect]
     Active Substance: ODEVIXIBAT
     Indication: Progressive familial intrahepatic cholestasis

REACTIONS (3)
  - Diarrhoea [Not Recovered/Not Resolved]
  - Abdominal discomfort [Unknown]
  - Off label use [Unknown]

NARRATIVE: CASE EVENT DATE: 20250507
